FAERS Safety Report 22151590 (Version 1)
Quarter: 2023Q1

REPORT INFORMATION
  Report Type: Spontaneous
  Country: US (occurrence: None)
  Receive Date: 20230329
  Receipt Date: 20230329
  Transmission Date: 20230418
  Serious: Yes (Life-Threatening, Hospitalization, Other)
  Sender: FDA-Public Use
  Company Number: US-MLMSERVICE-20230309-4154228-1

PATIENT
  Age: 61 Year
  Sex: Female

DRUGS (1)
  1. CISPLATIN [Suspect]
     Active Substance: CISPLATIN
     Indication: Bladder cancer
     Dosage: UNKNOWN
     Route: 065

REACTIONS (3)
  - Embolism arterial [Recovering/Resolving]
  - Coronary artery thrombosis [Recovering/Resolving]
  - Acute myocardial infarction [Recovering/Resolving]
